FAERS Safety Report 8336657-2 (Version None)
Quarter: 2012Q2

REPORT INFORMATION
  Report Type: 
  Country: None (occurrence: None)
  Receive Date: 20120504
  Receipt Date: 20120430
  Transmission Date: 20120825
  Serious: Yes (Other)
  Sender: FDA-Public Use
  Company Number: US-BAYER-2011-034344

PATIENT
  Age: 20 Year
  Sex: Female
  Weight: 72.562 kg

DRUGS (8)
  1. YASMIN [Suspect]
     Indication: CONTRACEPTION
     Dosage: UNK
     Dates: start: 20070409, end: 20071210
  2. AMOXICILLIN [Concomitant]
     Dosage: 500 MG, UNK
     Route: 048
     Dates: start: 20080103
  3. KETOROLAC TROMETHAMINE [Concomitant]
     Dosage: 10 MG, UNK
     Route: 048
     Dates: start: 20071001
  4. AZITHROMYCIN [Concomitant]
     Dosage: 250 MG, UNK
     Route: 048
     Dates: start: 20071001
  5. CLARITIN [Concomitant]
     Dosage: UNK
     Route: 048
     Dates: start: 19970101
  6. MAXALT [Concomitant]
     Route: 048
  7. YAZ [Suspect]
     Indication: CONTRACEPTION
     Dosage: UNK
     Dates: start: 20071201, end: 20080101
  8. DOXYCYCLINE [Concomitant]
     Dosage: UNK
     Dates: start: 20080101

REACTIONS (6)
  - PAIN IN EXTREMITY [None]
  - DEEP VEIN THROMBOSIS [None]
  - THROMBOPHLEBITIS SUPERFICIAL [None]
  - OEDEMA PERIPHERAL [None]
  - INJURY [None]
  - PAIN [None]
